FAERS Safety Report 20228121 (Version 2)
Quarter: 2022Q2

REPORT INFORMATION
  Report Type: Spontaneous
  Country: US (occurrence: US)
  Receive Date: 20211224
  Receipt Date: 20220401
  Transmission Date: 20220720
  Serious: Yes (Other)
  Sender: FDA-Public Use
  Company Number: US-JNJFOC-20211236301

PATIENT
  Sex: Female

DRUGS (2)
  1. STELARA [Suspect]
     Active Substance: USTEKINUMAB
     Indication: Colitis ulcerative
     Route: 058
  2. STELARA [Suspect]
     Active Substance: USTEKINUMAB

REACTIONS (7)
  - Aortic occlusion [Unknown]
  - Cystitis [Unknown]
  - Muscle spasms [Unknown]
  - Memory impairment [Unknown]
  - Blood glucose decreased [Unknown]
  - Colitis [Unknown]
  - Gastrooesophageal reflux disease [Unknown]
